FAERS Safety Report 15314595 (Version 1)
Quarter: 2018Q3

REPORT INFORMATION
  Report Type: Spontaneous
  Country: US (occurrence: US)
  Receive Date: 20180824
  Receipt Date: 20180824
  Transmission Date: 20181010
  Serious: No
  Sender: FDA-Public Use
  Company Number: US-APOTEX-2018AP009307

PATIENT
  Sex: Female

DRUGS (1)
  1. FENTANYL TRANSDERMAL SYSTEM [Suspect]
     Active Substance: FENTANYL
     Indication: ANALGESIC THERAPY
     Dosage: 1 DF, UNK EVERY 72 HOURS
     Route: 065

REACTIONS (3)
  - Product substitution issue [Unknown]
  - Drug effect incomplete [Unknown]
  - Product adhesion issue [Unknown]
